FAERS Safety Report 8484970-0 (Version None)
Quarter: 2012Q3

REPORT INFORMATION
  Report Type: 
  Country: None (occurrence: None)
  Receive Date: 20120703
  Receipt Date: 20120629
  Transmission Date: 20120928
  Serious: Yes (Other)
  Sender: FDA-Public Use
  Company Number: FR-PFIZER INC-2012152857

PATIENT
  Age: 60 Year
  Sex: Male

DRUGS (4)
  1. MODAFANIL [Suspect]
     Dosage: 100 MG, 2X/DAY
  2. EFFEXOR XR [Suspect]
     Dosage: 75 MG, 2X/DAY
     Route: 048
     Dates: start: 20080101
  3. MODAFANIL [Suspect]
     Indication: NARCOLEPSY
     Dosage: UNK
     Route: 048
     Dates: start: 20040601
  4. PRAZEPAM [Suspect]
     Dosage: 10 MG, TWICE OR THRICE DAILY
     Route: 048
     Dates: start: 20070101

REACTIONS (1)
  - PATHOLOGICAL GAMBLING [None]
